FAERS Safety Report 10345809 (Version 1)
Quarter: 2020Q3

REPORT INFORMATION
  Report Type: Spontaneous
  Country: FR (occurrence: FR)
  Receive Date: 20140728
  Receipt Date: 20140728
  Transmission Date: 20201104
  Serious: Yes (Hospitalization)
  Sender: FDA-Public Use
  Company Number: PHHY2014FR089273

PATIENT
  Age: 68 Year
  Sex: Male

DRUGS (12)
  1. AMOXICILLIN CLAVULANIC ACID SANDOZ [Suspect]
     Active Substance: AMOXICILLIN\CLAVULANIC ACID
     Indication: ANTIBIOTIC PROPHYLAXIS
     Route: 042
     Dates: start: 20140519, end: 20140519
  2. EPHEDRINE. [Suspect]
     Active Substance: EPHEDRINE
     Dosage: 18 MG, UNK
     Dates: start: 20140519, end: 20140519
  3. FUROSEMIDE. [Suspect]
     Active Substance: FUROSEMIDE
     Dates: start: 20140519, end: 20140519
  4. DIPRIVAN [Suspect]
     Active Substance: PROPOFOL
     Indication: GENERAL ANAESTHESIA
     Route: 042
     Dates: start: 20140519, end: 20140519
  5. SUFENTANIL MYLAN [Suspect]
     Active Substance: SUFENTANIL
     Indication: GENERAL ANAESTHESIA
     Route: 042
     Dates: start: 20140519, end: 20140519
  6. DEXAMETHASONE MERCK [Suspect]
     Active Substance: DEXAMETHASONE
     Dates: start: 20140519, end: 20140519
  7. XYLOCAINE [Suspect]
     Active Substance: LIDOCAINE HYDROCHLORIDE
     Dates: start: 20140519, end: 20140519
  8. ACUPAN [Suspect]
     Active Substance: NEFOPAM HYDROCHLORIDE
     Dates: start: 20140519, end: 20140519
  9. KETAMINE [Suspect]
     Active Substance: KETAMINE
     Dates: start: 20140519, end: 20140519
  10. PROFENID [Suspect]
     Active Substance: KETOPROFEN
     Dates: start: 20140519, end: 20140519
  11. DROLEPTAN [Suspect]
     Active Substance: DROPERIDOL
     Dates: start: 20140519, end: 20140519
  12. CONTRAMAL [Suspect]
     Active Substance: TRAMADOL HYDROCHLORIDE
     Dates: start: 20140519, end: 20140519

REACTIONS (1)
  - Acute kidney injury [Recovered/Resolved]

NARRATIVE: CASE EVENT DATE: 20140520
